FAERS Safety Report 23789448 (Version 1)
Quarter: 2024Q2

REPORT INFORMATION
  Report Type: Spontaneous
  Country: US (occurrence: US)
  Receive Date: 20240426
  Receipt Date: 20240426
  Transmission Date: 20240716
  Serious: No
  Sender: FDA-Public Use
  Company Number: US-PFIZER INC-202400081133

PATIENT
  Age: 7 Month
  Sex: Male

DRUGS (1)
  1. EUCRISA [Suspect]
     Active Substance: CRISABOROLE
     Indication: Eczema
     Dosage: TO AFFECTED AREAS ON FACE AND BODY UNTIL CLEAR
     Route: 061

REACTIONS (1)
  - Condition aggravated [Not Recovered/Not Resolved]
